FAERS Safety Report 17742328 (Version 15)
Quarter: 2022Q2

REPORT INFORMATION
  Report Type: Report from Study
  Country: US (occurrence: US)
  Receive Date: 20200504
  Receipt Date: 20220524
  Transmission Date: 20220721
  Serious: Yes (Hospitalization, Other)
  Sender: FDA-Public Use
  Company Number: US-SHIRE-US202015321

PATIENT
  Sex: Female
  Weight: 73 kg

DRUGS (30)
  1. HUMAN IMMUNOGLOBULIN G [Suspect]
     Active Substance: HUMAN IMMUNOGLOBULIN G
     Indication: Immunoglobulins abnormal
     Dosage: 22 GRAM, Q2WEEKS
     Route: 058
     Dates: start: 20200219
  2. HUMAN IMMUNOGLOBULIN G [Suspect]
     Active Substance: HUMAN IMMUNOGLOBULIN G
     Dosage: 20 GRAM, Q2WEEKS
     Route: 058
     Dates: start: 20200219
  3. DIPHENHYDRAMINE [Concomitant]
     Active Substance: DIPHENHYDRAMINE
     Dosage: UNK
     Route: 065
  4. ACETAMINOPHEN [Concomitant]
     Active Substance: ACETAMINOPHEN
     Dosage: UNK
     Route: 065
  5. EPINEPHRINE [Concomitant]
     Active Substance: EPINEPHRINE
     Dosage: UNK
     Route: 065
  6. Lmx [Concomitant]
     Dosage: UNK
     Route: 065
  7. LECITHIN [Concomitant]
     Active Substance: LECITHIN
     Dosage: UNK
     Route: 065
  8. AMINO ACIDS [Concomitant]
     Active Substance: AMINO ACIDS
     Dosage: UNK
     Route: 065
  9. Omega [Concomitant]
     Dosage: UNK
     Route: 065
  10. TRAZODONE HCL [Concomitant]
     Active Substance: TRAZODONE HYDROCHLORIDE
     Dosage: UNK
     Route: 065
  11. METFORMIN [Concomitant]
     Active Substance: METFORMIN HYDROCHLORIDE
     Dosage: UNK
     Route: 065
  12. ALPHA LIPOIC ACID [Concomitant]
     Active Substance: .ALPHA.-LIPOIC ACID
     Dosage: UNK
     Route: 065
  13. IODINE [Concomitant]
     Active Substance: IODINE
     Dosage: UNK
     Route: 065
  14. CINNAMON BARK POWDER [Concomitant]
     Dosage: UNK
     Route: 065
  15. B12 ACTIVE [Concomitant]
     Dosage: UNK
     Route: 065
  16. VITAMIN D3 [Concomitant]
     Active Substance: CHOLECALCIFEROL
     Dosage: UNK
     Route: 065
  17. ACIDOPHILUS [Concomitant]
     Active Substance: LACTOBACILLUS ACIDOPHILUS
     Dosage: UNK
     Route: 065
  18. SINGULAIR [Concomitant]
     Active Substance: MONTELUKAST SODIUM
     Dosage: UNK
     Route: 065
  19. ACIDOPHILUS CAPSULE [Concomitant]
     Dosage: UNK
     Route: 065
  20. SYNTHROID [Concomitant]
     Active Substance: LEVOTHYROXINE SODIUM
     Dosage: UNK
     Route: 065
  21. CONGAPLEX [Concomitant]
  22. DOXYCYCLINE [Concomitant]
     Active Substance: DOXYCYCLINE
     Dosage: UNK
  23. LEVOTHYROXINE [Concomitant]
     Active Substance: LEVOTHYROXINE
  24. PROGESTERONE [Concomitant]
     Active Substance: PROGESTERONE
  25. ACIDOPHILUS [Concomitant]
     Active Substance: LACTOBACILLUS ACIDOPHILUS
  26. DOXYCYCLINE HYCLATE [Concomitant]
     Active Substance: DOXYCYCLINE HYCLATE
  27. PHOSPHATE LAXATIVE [Concomitant]
     Dosage: UNK
     Route: 065
  28. APPLE CIDER VINEGAR [Concomitant]
     Active Substance: APPLE CIDER VINEGAR
     Dosage: UNK
     Route: 065
  29. B ACTIVE [Concomitant]
     Dosage: UNK
     Route: 065
  30. LECITHIN [Concomitant]
     Active Substance: LECITHIN
     Dosage: UNK
     Route: 065

REACTIONS (23)
  - Peripheral nerve palsy [Recovering/Resolving]
  - Encephalitis [Unknown]
  - Nephrolithiasis [Not Recovered/Not Resolved]
  - Seasonal allergy [Unknown]
  - Injection site urticaria [Unknown]
  - Injury associated with device [Unknown]
  - Infusion site haemorrhage [Unknown]
  - Gastroenteritis viral [Unknown]
  - Abdominal discomfort [Unknown]
  - Sinusitis [Not Recovered/Not Resolved]
  - Dark circles under eyes [Unknown]
  - Asthenia [Unknown]
  - Tooth disorder [Unknown]
  - Increased appetite [Unknown]
  - Weight increased [Unknown]
  - Injection site erythema [Unknown]
  - Hyperhidrosis [Unknown]
  - Pyrexia [Unknown]
  - Weight decreased [Unknown]
  - Feeling abnormal [Unknown]
  - Injection site swelling [Unknown]
  - Therapy interrupted [Unknown]
  - Insurance issue [Unknown]
